FAERS Safety Report 6825529-8 (Version None)
Quarter: 2010Q3

REPORT INFORMATION
  Report Type: 
  Country: None (occurrence: None)
  Receive Date: 20100708
  Receipt Date: 20070105
  Transmission Date: 20110219
  Serious: No
  Sender: FDA-Public Use
  Company Number: US-PFIZER INC-2007002676

PATIENT
  Sex: Female
  Weight: 63.5 kg

DRUGS (2)
  1. CHANTIX [Suspect]
     Indication: SMOKING CESSATION THERAPY
     Dates: start: 20061201
  2. ALL OTHER THERAPEUTIC PRODUCTS [Concomitant]
     Indication: HOT FLUSH
     Dates: start: 20060101

REACTIONS (2)
  - HOT FLUSH [None]
  - NERVOUSNESS [None]
